FAERS Safety Report 5081008-2 (Version None)
Quarter: 2006Q3

REPORT INFORMATION
  Report Type: 
  Country: None (occurrence: None)
  Receive Date: 20060810
  Receipt Date: 20060803
  Transmission Date: 20061208
  Serious: Yes (Hospitalization, Other)
  Sender: FDA-Public Use
  Company Number: FRWYE504203AUG06

PATIENT
  Age: 22 Year
  Sex: Male

DRUGS (8)
  1. TAZOCILLINE (PIPERACILLIN/TAZOBACTAM, INJECTION) [Suspect]
     Indication: PYREXIA
     Dosage: PIPERACILLIN 12 G DAILY/TAZOBACTAM 1.5 G DAILY/ NTRAVENOUS
     Route: 042
     Dates: start: 20060624, end: 20060706
  2. CYTARABINE [Suspect]
     Indication: ACUTE MYELOMONOCYTIC LEUKAEMIA
     Dosage: SEE IMAGE
     Dates: start: 20060615, end: 20060618
  3. CYTARABINE [Suspect]
     Indication: ACUTE MYELOMONOCYTIC LEUKAEMIA
     Dosage: SEE IMAGE
     Dates: end: 20060627
  4. ... [Suspect]
  5. AZANTAC (RANITIDINE HYDROCHLORIDE, ,0) [Suspect]
     Dosage: 150 MG 1X PER 1 DAY INTRAVENOUS
     Route: 042
     Dates: start: 20060614, end: 20060706
  6. HYDROCORTISONE [Suspect]
     Indication: ACUTE MYELOMONOCYTIC LEUKAEMIA
     Dosage: 50 MG 1X PER 1 CYC INTRATHECAL
     Route: 037
     Dates: end: 20060627
  7. METHOTREXATE [Suspect]
     Indication: ACUTE MYELOMONOCYTIC LEUKAEMIA
     Dosage: 15 MG 1X PER 1 CYC INTRATHECAL
     Route: 037
     Dates: end: 20060627
  8. FUNGIZONE [Concomitant]

REACTIONS (11)
  - AGITATION [None]
  - ANXIETY [None]
  - APHASIA [None]
  - CONVULSION [None]
  - CRYING [None]
  - CSF PROTEIN INCREASED [None]
  - DEPRESSED LEVEL OF CONSCIOUSNESS [None]
  - ENCEPHALOPATHY [None]
  - INAPPROPRIATE AFFECT [None]
  - MYDRIASIS [None]
  - SPEECH DISORDER [None]
